FAERS Safety Report 5339576-9 (Version None)
Quarter: 2007Q2

REPORT INFORMATION
  Report Type: 
  Country: None (occurrence: None)
  Receive Date: 20070525
  Receipt Date: 20070518
  Transmission Date: 20071010
  Serious: Yes (Other)
  Sender: FDA-Public Use
  Company Number: 07-107

PATIENT
  Age: 42 Year
  Sex: Female

DRUGS (6)
  1. VITAMIN D [Suspect]
     Indication: VITAMIN D DEFICIENCY
     Dosage: ONE CAPSULE WEEKLY, ORAL
     Route: 048
  2. CLARITIN [Concomitant]
  3. NEXIUM [Concomitant]
  4. PRILOSEC [Concomitant]
  5. DOXYCYCLINE [Concomitant]
  6. COMPAZINE [Concomitant]

REACTIONS (5)
  - HALLUCINATION, VISUAL [None]
  - HYPERSENSITIVITY [None]
  - INCREASED UPPER AIRWAY SECRETION [None]
  - PHARYNGEAL OEDEMA [None]
  - PRURITUS [None]
